FAERS Safety Report 7176799-0 (Version None)
Quarter: 2010Q4

REPORT INFORMATION
  Report Type: 
  Country: None (occurrence: None)
  Receive Date: 20101216
  Receipt Date: 20101216
  Transmission Date: 20110411
  Serious: Yes (Hospitalization)
  Sender: FDA-Public Use
  Company Number: None

PATIENT
  Age: 64 Year
  Sex: Male
  Weight: 94.3482 kg

DRUGS (2)
  1. RYTHMOL SR [Suspect]
     Indication: ATRIAL FIBRILLATION
     Dosage: 225 MG TWICE DAILY PO
     Route: 048
     Dates: start: 20090301, end: 20090530
  2. WARFARIN 5 MG [Suspect]
     Indication: HEART RATE IRREGULAR
     Dosage: 5 MG DAILY PO
     Route: 048
     Dates: start: 20090101, end: 20090730

REACTIONS (1)
  - RENAL HAEMORRHAGE [None]
